FAERS Safety Report 23232767 (Version 1)
Quarter: 2023Q4

REPORT INFORMATION
  Report Type: Spontaneous
  Country: US (occurrence: US)
  Receive Date: 20231128
  Receipt Date: 20231128
  Transmission Date: 20240110
  Serious: Yes (Other)
  Sender: FDA-Public Use
  Company Number: US-AMGEN-USASP2023207453

PATIENT

DRUGS (1)
  1. NEUPOGEN [Suspect]
     Active Substance: FILGRASTIM
     Indication: Combined immunodeficiency
     Dosage: UNK
     Route: 065

REACTIONS (43)
  - Respiratory tract infection [Unknown]
  - Gastrointestinal infection [Unknown]
  - Tooth infection [Unknown]
  - Oral infection [Unknown]
  - Skin infection [Unknown]
  - Infection [Unknown]
  - Pneumonia [Unknown]
  - Bronchiectasis [Unknown]
  - Haemophilus infection [Unknown]
  - Fungal infection [Unknown]
  - Moraxella infection [Unknown]
  - Enterovirus infection [Unknown]
  - Rhinovirus infection [Unknown]
  - Influenza [Unknown]
  - Herpes dermatitis [Unknown]
  - Vulvovaginal candidiasis [Unknown]
  - Staphylococcal abscess [Unknown]
  - Metapneumovirus infection [Unknown]
  - Clostridium difficile colitis [Unknown]
  - Cyclosporidium infection [Unknown]
  - Trichophytosis [Unknown]
  - Urinary tract infection [Unknown]
  - Upper respiratory tract infection [Unknown]
  - Ovarian cyst [Unknown]
  - Migraine [Unknown]
  - Weight increased [Unknown]
  - Hyperglycaemia [Unknown]
  - Hyperuricaemia [Unknown]
  - Bone pain [Unknown]
  - Arthralgia [Unknown]
  - Rash [Unknown]
  - Headache [Unknown]
  - Nausea [Unknown]
  - Anaemia [Unknown]
  - Splenomegaly [Unknown]
  - Treatment failure [Unknown]
  - Selective IgA immunodeficiency [Unknown]
  - Lung disorder [Unknown]
  - Pulmonary function test abnormal [Unknown]
  - Lung diffusion test decreased [Unknown]
  - Laboratory test abnormal [Unknown]
  - Skin papilloma [Unknown]
  - Injection site reaction [Unknown]
